FAERS Safety Report 15083689 (Version 1)
Quarter: 2018Q2

REPORT INFORMATION
  Report Type: Spontaneous
  Country: US (occurrence: US)
  Receive Date: 20180608
  Receipt Date: 20180608
  Transmission Date: 20180711
  Serious: No
  Sender: FDA-Public Use
  Company Number: None

PATIENT
  Age: 70 Year
  Sex: Female
  Weight: 75.6 kg

DRUGS (7)
  1. VITAMIN D3 [Concomitant]
     Active Substance: CHOLECALCIFEROL
  2. PROZAC [Concomitant]
     Active Substance: FLUOXETINE HYDROCHLORIDE
  3. IMPERIDE [Concomitant]
  4. MYRBETRIQ [Suspect]
     Active Substance: MIRABEGRON
     Indication: INCONTINENCE
     Dosage: ?          QUANTITY:1 DF DOSAGE FORM;?
     Route: 048
  5. BACLOFEN. [Concomitant]
     Active Substance: BACLOFEN
  6. MULTI VITAMIN [Concomitant]
     Active Substance: VITAMINS
  7. BUPROPION. [Concomitant]
     Active Substance: BUPROPION

REACTIONS (1)
  - White blood cell count increased [None]

NARRATIVE: CASE EVENT DATE: 20171111
